FAERS Safety Report 4832458-8 (Version None)
Quarter: 2005Q4

REPORT INFORMATION
  Report Type: 
  Country: None (occurrence: None)
  Receive Date: 20051116
  Receipt Date: 20051102
  Transmission Date: 20060501
  Serious: Yes (Death)
  Sender: FDA-Public Use
  Company Number: 2005-DE-02350GD

PATIENT
  Sex: 0

DRUGS (15)
  1. OXAZEPAM [Suspect]
  2. DIAZEPAM [Suspect]
  3. CODEINE SUL TAB [Suspect]
  4. MORPHINE [Suspect]
  5. HYDROMORPHONE HCL [Suspect]
  6. OXYCODONE HCL [Suspect]
  7. HEROIN (DIAMORPHINE) [Suspect]
  8. AMITRIPTYLINE HCL [Suspect]
  9. NORTRIPTYLINE HCL [Suspect]
  10. DOXEPIN (DOXEPIN) [Suspect]
  11. CHLORDIAZEPOXIDE [Suspect]
  12. FLURAZEPAM [Suspect]
  13. DESIPRAMINE HCL [Suspect]
  14. IMIPRAMINE [Suspect]
  15. PHENCYCLIDINE (PHENICYCLIDINE) [Suspect]

REACTIONS (3)
  - DRUG ABUSER [None]
  - DRUG INTERACTION [None]
  - DRUG TOXICITY [None]
